FAERS Safety Report 23532983 (Version 3)
Quarter: 2024Q2

REPORT INFORMATION
  Report Type: Spontaneous
  Country: US (occurrence: US)
  Receive Date: 20240216
  Receipt Date: 20240404
  Transmission Date: 20240715
  Serious: No
  Sender: FDA-Public Use
  Company Number: US-JNJFOC-20240174215

PATIENT
  Age: 69 Year
  Sex: Male
  Weight: 108.51 kg

DRUGS (8)
  1. STELARA [Suspect]
     Active Substance: USTEKINUMAB
     Indication: Colitis ulcerative
     Route: 058
  2. STELARA [Suspect]
     Active Substance: USTEKINUMAB
     Route: 058
  3. MIRABEGRON [Concomitant]
     Active Substance: MIRABEGRON
  4. ATORVASTATIN [Concomitant]
     Active Substance: ATORVASTATIN
  5. JARDIANCE [Concomitant]
     Active Substance: EMPAGLIFLOZIN
  6. MEXILETINE [Concomitant]
     Active Substance: MEXILETINE
  7. FUROSEMIDE [Concomitant]
     Active Substance: FUROSEMIDE
  8. AMIODARONE [Concomitant]
     Active Substance: AMIODARONE

REACTIONS (5)
  - Syringe issue [Unknown]
  - Accidental exposure to product [Unknown]
  - Product dose omission issue [Unknown]
  - Device malfunction [Unknown]
  - Off label use [Unknown]

NARRATIVE: CASE EVENT DATE: 20240124
